FAERS Safety Report 7609052-9 (Version None)
Quarter: 2011Q3

REPORT INFORMATION
  Report Type: 
  Country: None (occurrence: None)
  Receive Date: 20110714
  Receipt Date: 20110704
  Transmission Date: 20111222
  Serious: Yes (Hospitalization)
  Sender: FDA-Public Use
  Company Number: FR-EISAI INC-E7273-00233-SPO-FR

PATIENT
  Sex: Female
  Weight: 81 kg

DRUGS (5)
  1. TARGRETIN [Suspect]
     Route: 048
  2. TARGRETIN [Suspect]
     Route: 048
     Dates: start: 20110128
  3. LIPANTHYL 160 [Concomitant]
     Dates: start: 20110224
  4. TARGRETIN [Suspect]
     Indication: MYCOSIS FUNGOIDES
     Route: 048
  5. XERIAL 10 [Concomitant]

REACTIONS (4)
  - DRUG INEFFECTIVE [None]
  - ERYTHEMA [None]
  - HYPERTRIGLYCERIDAEMIA [None]
  - OEDEMA PERIPHERAL [None]
